FAERS Safety Report 8882111 (Version 1)
Quarter: 2012Q4

REPORT INFORMATION
  Report Type: Report from Study
  Country: CA (occurrence: CA)
  Receive Date: 20121105
  Receipt Date: 20121105
  Transmission Date: 20130627
  Serious: No
  Sender: FDA-Public Use
  Company Number: CA-JNJFOC-20121100904

PATIENT
  Sex: Male
  Weight: 76 kg

DRUGS (5)
  1. REMICADE [Suspect]
     Indication: COLITIS ULCERATIVE
     Route: 042
     Dates: start: 20120905
  2. RAMIPRIL [Concomitant]
     Dosage: 10 (unit unspecified)
     Route: 065
  3. METFORMIN [Concomitant]
     Dosage: 500 (unit unspecified).
     Route: 065
  4. CYMBALTA [Concomitant]
     Dosage: 90(unit unspecified).
     Route: 065
  5. FERROUS SULFATE [Concomitant]
     Route: 065

REACTIONS (1)
  - Herpes zoster [Recovering/Resolving]
